FAERS Safety Report 8520110-7 (Version None)
Quarter: 2012Q3

REPORT INFORMATION
  Report Type: 
  Country: None (occurrence: None)
  Receive Date: 20120719
  Receipt Date: 20120713
  Transmission Date: 20120928
  Serious: Yes (Other)
  Sender: FDA-Public Use
  Company Number: US-BAYER-2012-015879

PATIENT
  Age: 20 Year
  Sex: Female

DRUGS (2)
  1. YAZ [Suspect]
     Dosage: UNK
     Dates: start: 20020101, end: 20090101
  2. YASMIN [Suspect]
     Dosage: UNK
     Dates: start: 20020101, end: 20090101

REACTIONS (5)
  - MENTAL DISORDER [None]
  - GALLBLADDER DISORDER [None]
  - PAIN [None]
  - INJURY [None]
  - CHOLECYSTITIS CHRONIC [None]
